FAERS Safety Report 9135710 (Version 1)
Quarter: 2013Q1

REPORT INFORMATION
  Report Type: Spontaneous
  Country: US (occurrence: US)
  Receive Date: 20130304
  Receipt Date: 20130304
  Transmission Date: 20140127
  Serious: Yes (Other)
  Sender: FDA-Public Use
  Company Number: US-UCBSA-079595

PATIENT
  Age: 36 Year
  Sex: Female

DRUGS (2)
  1. CIMZIA [Suspect]
     Indication: RHEUMATOID ARTHRITIS
     Dates: start: 201301
  2. CIMZIA [Suspect]
     Indication: SARCOIDOSIS
     Dates: start: 201301

REACTIONS (4)
  - Weight increased [Unknown]
  - Fall [Unknown]
  - Pain [Unknown]
  - Food craving [Unknown]
